FAERS Safety Report 24974985 (Version 1)
Quarter: 2025Q1

REPORT INFORMATION
  Report Type: Report from Study
  Country: UA (occurrence: UA)
  Receive Date: 20250217
  Receipt Date: 20250217
  Transmission Date: 20250409
  Serious: Yes (Other)
  Sender: ALEXION PHARMACEUTICALS
  Company Number: UA-AstraZeneca-CH-00805636A

PATIENT
  Age: 74 Year

DRUGS (4)
  1. BRILINTA [Suspect]
     Active Substance: TICAGRELOR
     Dosage: 90 MILLIGRAM, BID
  2. UNSPECIFIED INGREDIENT [Suspect]
     Active Substance: UNSPECIFIED INGREDIENT
     Route: 065
  3. ROSUVASTATIN [Concomitant]
     Active Substance: ROSUVASTATIN
     Route: 065
  4. ASPIRIN [Concomitant]
     Active Substance: ASPIRIN
     Route: 065

REACTIONS (12)
  - Dyspnoea [Unknown]
  - Contusion [Unknown]
  - Epistaxis [Unknown]
  - Chromaturia [Unknown]
  - Urticaria [Unknown]
  - Abdominal distension [Unknown]
  - Oesophageal pain [Unknown]
  - Tinnitus [Unknown]
  - Swelling face [Unknown]
  - Oedematous kidney [Unknown]
  - Productive cough [Unknown]
  - Oral herpes [Unknown]
